FAERS Safety Report 9730582 (Version 1)
Quarter: 2013Q4

REPORT INFORMATION
  Report Type: Report from Study
  Country: FR (occurrence: FR)
  Receive Date: 20131205
  Receipt Date: 20131205
  Transmission Date: 20140711
  Serious: Yes (Hospitalization)
  Sender: FDA-Public Use
  Company Number: FR-ROCHE-1309428

PATIENT
  Age: 79 Year
  Sex: Male

DRUGS (1)
  1. AVASTIN [Suspect]
     Indication: COLORECTAL CANCER METASTATIC
     Route: 042

REACTIONS (2)
  - Ischaemic stroke [Recovering/Resolving]
  - Visual impairment [Recovered/Resolved]
